FAERS Safety Report 9311377 (Version 1)
Quarter: 2013Q1

REPORT INFORMATION
  Report Type: Spontaneous
  Country: IL (occurrence: None)
  Receive Date: 20130208
  Receipt Date: 20130208
  Transmission Date: 20140127
  Serious: Yes (Death)
  Sender: FDA-Public Use
  Company Number: 2013-0403

PATIENT
  Age: 89 Year
  Sex: Male

DRUGS (4)
  1. SOMATULINE AUTOGEL [Suspect]
     Indication: NEUROENDOCRINE TUMOUR
     Dosage: 120 MG (120 MG, 1 IN 28 D)
     Dates: start: 20091220
  2. CIPRALEX (ESCITALOPRAM) [Concomitant]
  3. RISPERDAL (RISPERIDONE) [Concomitant]
  4. NORVASC (AMLODIPINE) [Concomitant]

REACTIONS (1)
  - Death [None]
